FAERS Safety Report 4410651-6 (Version None)
Quarter: 2004Q3

REPORT INFORMATION
  Report Type: 
  Country: None (occurrence: None)
  Receive Date: 20040726
  Receipt Date: 20040715
  Transmission Date: 20050211
  Serious: Yes (Hospitalization)
  Sender: FDA-Public Use
  Company Number: 04P-087-0267611-00

PATIENT
  Age: 56 Year
  Sex: Male

DRUGS (9)
  1. NORVIR [Suspect]
     Indication: HIV INFECTION
     Dosage: SEE IMAGE
     Route: 048
     Dates: start: 19991108, end: 19991107
  2. .... [Suspect]
  3. STAVUDINE [Concomitant]
  4. SAQUINAVIR [Concomitant]
  5. EFAVIRENZ [Concomitant]
  6. SULFAMETHOXAZOLE [Concomitant]
  7. FLUCONAZOLE [Concomitant]
  8. ACYCLOVIR [Concomitant]
  9. BROTIZOLAM [Concomitant]

REACTIONS (1)
  - CHOLECYSTITIS [None]
